FAERS Safety Report 14236388 (Version 1)
Quarter: 2017Q4

REPORT INFORMATION
  Report Type: Spontaneous
  Country: US (occurrence: US)
  Receive Date: 20171129
  Receipt Date: 20171129
  Transmission Date: 20180321
  Serious: No
  Sender: FDA-Public Use
  Company Number: US-PFIZER INC-2017507109

PATIENT
  Age: 79 Year
  Sex: Male
  Weight: 76.64 kg

DRUGS (6)
  1. LYRICA [Suspect]
     Active Substance: PREGABALIN
     Indication: POLYNEUROPATHY
  2. LYRICA [Suspect]
     Active Substance: PREGABALIN
     Indication: OSTEOARTHRITIS
  3. LYRICA [Suspect]
     Active Substance: PREGABALIN
     Indication: SPINAL DISORDER
     Dosage: 50 MG, UNK [EVERY THIRD DAY]
  4. VITAMIN D [Concomitant]
     Active Substance: CHOLECALCIFEROL
  5. LYRICA [Suspect]
     Active Substance: PREGABALIN
     Indication: PAIN
  6. FISH OIL [Concomitant]
     Active Substance: FISH OIL
     Dosage: UNK

REACTIONS (4)
  - Intentional product misuse [Unknown]
  - Feeling drunk [Unknown]
  - Feeling abnormal [Unknown]
  - Headache [Unknown]
